FAERS Safety Report 11273076 (Version 2)
Quarter: 2015Q3

REPORT INFORMATION
  Report Type: Report from Study
  Country: US (occurrence: US)
  Receive Date: 20150715
  Receipt Date: 20150903
  Transmission Date: 20151125
  Serious: No
  Sender: FDA-Public Use
  Company Number: PHHY2014US158815

PATIENT
  Age: 55 Year
  Sex: Female

DRUGS (1)
  1. GILENYA [Suspect]
     Active Substance: FINGOLIMOD HYDROCHLORIDE
     Indication: MULTIPLE SCLEROSIS
     Dosage: UNK
     Route: 048

REACTIONS (10)
  - Vertigo [Recovered/Resolved]
  - Monocyte count decreased [Unknown]
  - Urinary retention [Unknown]
  - Nausea [Unknown]
  - Hot flush [Unknown]
  - Leukopenia [Recovered/Resolved]
  - Alanine aminotransferase increased [Unknown]
  - Lymphopenia [Recovered/Resolved]
  - Stress urinary incontinence [Unknown]
  - Paraesthesia [Recovered/Resolved]

NARRATIVE: CASE EVENT DATE: 20140101
